FAERS Safety Report 5189739-0 (Version None)
Quarter: 2006Q4

REPORT INFORMATION
  Report Type: 
  Country: None (occurrence: None)
  Receive Date: 20061221
  Receipt Date: 20050610
  Transmission Date: 20070319
  Serious: No
  Sender: FDA-Public Use
  Company Number: US-AMGEN-US138126

PATIENT
  Age: 34 Year
  Sex: Male

DRUGS (2)
  1. ENBREL [Suspect]
     Indication: PSORIASIS
     Route: 065
     Dates: start: 20040601
  2. LORAZEPAM [Concomitant]
     Route: 065

REACTIONS (2)
  - ACNE CYSTIC [None]
  - CONDITION AGGRAVATED [None]
